FAERS Safety Report 20311006 (Version 2)
Quarter: 2022Q1

REPORT INFORMATION
  Report Type: Spontaneous
  Country: US (occurrence: US)
  Receive Date: 20220107
  Receipt Date: 20220308
  Transmission Date: 20220424
  Serious: Yes (Hospitalization, Other)
  Sender: FDA-Public Use
  Company Number: US-LUPIN PHARMACEUTICALS INC.-2021-26527

PATIENT
  Age: 34 Year
  Sex: Male

DRUGS (1)
  1. HYDROCORTISONE VALERATE [Suspect]
     Active Substance: HYDROCORTISONE VALERATE
     Indication: Dermatitis atopic
     Dosage: HYDROCORTISONE 1% (UP TO 2.5%). APPLIED MULTIPLE TIMES DAILY.
     Route: 061

REACTIONS (2)
  - Steroid withdrawal syndrome [Recovering/Resolving]
  - Erythema [Recovering/Resolving]
